FAERS Safety Report 8451003-1 (Version None)
Quarter: 2012Q2

REPORT INFORMATION
  Report Type: 
  Country: None (occurrence: None)
  Receive Date: 20120614
  Receipt Date: 20120614
  Transmission Date: 20120825
  Serious: Yes (Other)
  Sender: FDA-Public Use
  Company Number: None

PATIENT
  Age: 78 Year
  Sex: Female

DRUGS (2)
  1. METRONIDAZOLE [Suspect]
     Indication: INFECTION
     Dosage: 500MG TWICE A DAY PO
     Route: 048
  2. CESUROXINAAXETIL [Concomitant]

REACTIONS (2)
  - SENSORY DISTURBANCE [None]
  - NEUROPATHY PERIPHERAL [None]
